FAERS Safety Report 6731291-X (Version None)
Quarter: 2010Q2

REPORT INFORMATION
  Report Type: 
  Country: None (occurrence: None)
  Receive Date: 20100517
  Receipt Date: 20100517
  Transmission Date: 20101027
  Serious: No
  Sender: FDA-Public Use
  Company Number: None

PATIENT
  Age: 62 Year
  Sex: Female
  Weight: 121.564 kg

DRUGS (1)
  1. SAVELLA [Suspect]
     Indication: FIBROMYALGIA
     Dosage: 1 50 MG TABLET 2 TIMES A DAY PO
     Route: 048
     Dates: start: 20090801, end: 20091101

REACTIONS (4)
  - ANGER [None]
  - DRUG INEFFECTIVE [None]
  - MOOD ALTERED [None]
  - WEIGHT DECREASED [None]
